FAERS Safety Report 4384244-3 (Version None)
Quarter: 2004Q2

REPORT INFORMATION
  Report Type: 
  Country: None (occurrence: None)
  Receive Date: 20040624
  Receipt Date: 20040616
  Transmission Date: 20050107
  Serious: Yes (Other)
  Sender: FDA-Public Use
  Company Number: PHBS2004JP07933

PATIENT
  Age: 27 Year
  Sex: Female

DRUGS (4)
  1. SIMULECT [Suspect]
     Indication: RENAL TRANSPLANT
     Route: 042
  2. CYCLOSPORINE [Suspect]
     Indication: RENAL TRANSPLANT
     Route: 065
  3. MYCOPHENOLATE MOFETIL [Concomitant]
     Indication: RENAL TRANSPLANT
     Route: 065
  4. PREDNISOLONE [Concomitant]
     Indication: RENAL TRANSPLANT
     Route: 065

REACTIONS (2)
  - CYTOMEGALOVIRUS ANTIBODY POSITIVE [None]
  - IDIOPATHIC THROMBOCYTOPENIC PURPURA [None]
